FAERS Safety Report 5036784-1 (Version None)
Quarter: 2006Q2

REPORT INFORMATION
  Report Type: 
  Country: None (occurrence: None)
  Receive Date: 20060622
  Receipt Date: 20060612
  Transmission Date: 20061013
  Serious: Yes (Hospitalization)
  Sender: FDA-Public Use
  Company Number: 226211

PATIENT
  Age: 56 Year
  Sex: Male
  Weight: 79.8 kg

DRUGS (10)
  1. AVASTIN [Suspect]
     Indication: PANCREATIC NEOPLASM
     Dosage: 5 MG/KG Q2 INTRAVENOUS
     Route: 042
     Dates: start: 20060502, end: 20060530
  2. DEXAMETHASONE [Suspect]
     Indication: PANCREATIC NEOPLASM
     Dosage: 20 MG Q2W INTRAVENOUS
     Route: 042
     Dates: start: 20060502, end: 20060530
  3. LORAZEPAM [Suspect]
     Indication: PANCREATIC NEOPLASM
     Dosage: 1 MGQ2W ORAL
     Route: 048
     Dates: start: 20060502, end: 20060530
  4. GRANISETRON (GRANISETRON HYDROCHLORIDE) [Suspect]
     Indication: PANCREATIC NEOPLASM
     Dosage: 10 AUG /KG Q2W INTRAVENOUS
     Route: 042
     Dates: start: 20060502, end: 20060530
  5. OXALIPLATIN (OXALIPLATIN) [Suspect]
     Indication: PANCREATIC NEOPLASM
     Dosage: 85MG/M2 Q2W INTRAVENOUS
     Route: 042
     Dates: start: 20060502, end: 20060530
  6. LEUCOVORIN CALCIUM [Suspect]
     Indication: PANCREATIC NEOPLASM
     Dosage: 200MG/M2 Q2W INTRAVENOUS
     Route: 042
     Dates: start: 20060502, end: 20060530
  7. FLUOROURACIL [Suspect]
     Indication: PANCREATIC NEOPLASM
     Dosage: Q2W
     Dates: start: 20060502, end: 20060530
  8. ACETAMINOPHEN [Concomitant]
  9. IMODIUM [Concomitant]
  10. LORAZEPAM [Concomitant]

REACTIONS (1)
  - PYREXIA [None]
